FAERS Safety Report 15956594 (Version 2)
Quarter: 2019Q1

REPORT INFORMATION
  Report Type: Spontaneous
  Country: US (occurrence: US)
  Receive Date: 20190213
  Receipt Date: 20190320
  Transmission Date: 20190417
  Serious: Yes (Other)
  Sender: FDA-Public Use
  Company Number: US-PFIZER INC-2019058062

PATIENT
  Age: 10 Year
  Sex: Female
  Weight: 46.72 kg

DRUGS (1)
  1. ADVIL [Suspect]
     Active Substance: IBUPROFEN
     Indication: PAIN
     Dosage: 1 DF, 3X/DAY (TAKING ONE EVERY 8 HOURS BY MOUTH)
     Route: 048
     Dates: start: 20190128

REACTIONS (2)
  - Intentional product use issue [Unknown]
  - Eosinophilic oesophagitis [Not Recovered/Not Resolved]

NARRATIVE: CASE EVENT DATE: 20190128
